FAERS Safety Report 9743586 (Version 1)
Quarter: 2013Q4

REPORT INFORMATION
  Report Type: Spontaneous
  Country: US (occurrence: US)
  Receive Date: 20131210
  Receipt Date: 20131210
  Transmission Date: 20140711
  Serious: Yes (Other)
  Sender: FDA-Public Use
  Company Number: US-TEVA-382565USA

PATIENT
  Age: 38 Year
  Sex: Female
  Weight: 103.06 kg

DRUGS (6)
  1. PARAGARD 380A [Suspect]
     Indication: CONTRACEPTION
     Route: 015
     Dates: start: 201203, end: 20130122
  2. METFORMIN [Concomitant]
     Indication: POLYCYSTIC OVARIES
     Dates: start: 20120308
  3. METOPROLOL TARTRATE [Concomitant]
     Indication: HYPERTENSION
     Dates: start: 20100714
  4. PREVACID [Concomitant]
     Indication: GASTROOESOPHAGEAL REFLUX DISEASE
     Dates: start: 20080512
  5. ZOLOFT [Concomitant]
     Indication: DEPRESSION
     Dates: start: 20120308
  6. ZYRTEC [Concomitant]
     Indication: HYPERSENSITIVITY

REACTIONS (4)
  - Vaginal haemorrhage [Recovered/Resolved]
  - Dyspareunia [Recovered/Resolved]
  - Device expulsion [Recovered/Resolved]
  - Medical device complication [Recovered/Resolved]
